FAERS Safety Report 5302281-9 (Version None)
Quarter: 2007Q2

REPORT INFORMATION
  Report Type: 
  Country: None (occurrence: None)
  Receive Date: 20070412
  Receipt Date: 20070404
  Transmission Date: 20071010
  Serious: Yes (Hospitalization)
  Sender: FDA-Public Use
  Company Number: 2007-01746

PATIENT
  Age: 66 Year
  Sex: Female

DRUGS (10)
  1. ETOPOSIDE [Suspect]
     Indication: NON-HODGKIN'S LYMPHOMA
     Dosage: 120 MG/M2, ON DAY 1,
     Dates: start: 19990101, end: 19990101
  2. PREDNISONE TAB [Suspect]
     Indication: ANTIINFLAMMATORY THERAPY
     Dosage: 60 MG/MG QD, D 1-14, Q21 DAYS
     Dates: start: 19990101, end: 19990101
  3. CYCLOPHOSPHAMIDE [Suspect]
     Indication: NON-HODGKIN'S LYMPHOMA
     Dosage: 650 MG/M2, ON DAY 1
     Dates: start: 19990101, end: 19990101
  4. EPIRUBICIN [Suspect]
     Indication: NON-HODGKIN'S LYMPHOMA
     Dosage: 30 MG/M2, ON DAY 1
     Dates: start: 19990101, end: 19990101
  5. CYTARABINE [Suspect]
     Indication: NON-HODGKIN'S LYMPHOMA
     Dosage: 300 MG/M2, ON DAY 8
     Dates: start: 19990101, end: 19990101
  6. BLEOMYCIN [Suspect]
     Indication: NON-HODGKIN'S LYMPHOMA
     Dosage: 5 U/M2 ON DAY 8
     Dates: start: 19990101, end: 19990101
  7. VINCRISTINE [Suspect]
     Indication: NON-HODGKIN'S LYMPHOMA
     Dosage: 1.4 MG/M2, ON DAY 8
     Dates: start: 19990101, end: 19990101
  8. METHOTREXATE [Suspect]
     Indication: NON-HODGKIN'S LYMPHOMA
     Dosage: 120 MG/M2, ON DAY 8
     Dates: start: 19990101, end: 19990101
  9. DOXAZOSIN MESYLATE [Concomitant]
  10. NIFEDIPINE [Concomitant]

REACTIONS (1)
  - RETROPERITONEAL FIBROSIS [None]
